FAERS Safety Report 21021017 (Version 1)
Quarter: 2022Q2

REPORT INFORMATION
  Report Type: Spontaneous
  Country: GB (occurrence: GB)
  Receive Date: 20220629
  Receipt Date: 20220629
  Transmission Date: 20220721
  Serious: Yes (Other)
  Sender: FDA-Public Use
  Company Number: GB-MHRA-MED-202206171409249710-GJNBT

PATIENT
  Age: 72 Year
  Sex: Female

DRUGS (1)
  1. VANCOMYCIN [Suspect]
     Active Substance: VANCOMYCIN
     Indication: Infection prophylaxis
     Route: 065
     Dates: start: 20220616, end: 20220616

REACTIONS (4)
  - Rash erythematous [Recovering/Resolving]
  - Pruritus [Unknown]
  - Oedema [Unknown]
  - Administration site pain [Unknown]

NARRATIVE: CASE EVENT DATE: 20220616
